FAERS Safety Report 6766703-9 (Version None)
Quarter: 2010Q2

REPORT INFORMATION
  Report Type: 
  Country: None (occurrence: None)
  Receive Date: 20100609
  Receipt Date: 20100525
  Transmission Date: 20101027
  Serious: Yes (Hospitalization)
  Sender: FDA-Public Use
  Company Number: AUR-APL-2010-01393

PATIENT
  Age: 65 Year
  Sex: Female
  Weight: 115 kg

DRUGS (8)
  1. ATENOLOL [Suspect]
  2. METFORMIN HCL [Suspect]
  3. PAROXETINE HCL [Suspect]
  4. SIMVASTATIN [Suspect]
  5. ASPIRIN [Suspect]
  6. CARBIMAZOLE [Suspect]
  7. MIXTARD HUMAN 70/30 [Suspect]
  8. RAMIPRIL [Suspect]

REACTIONS (7)
  - AGITATION [None]
  - BLOOD GLUCOSE INCREASED [None]
  - BLOOD PRESSURE SYSTOLIC INCREASED [None]
  - CONFUSIONAL STATE [None]
  - HYPOPHAGIA [None]
  - RESTLESSNESS [None]
  - SOMNOLENCE [None]
